FAERS Safety Report 8453171-4 (Version None)
Quarter: 2012Q2

REPORT INFORMATION
  Report Type: 
  Country: None (occurrence: None)
  Receive Date: 20120620
  Receipt Date: 20120510
  Transmission Date: 20120825
  Serious: No
  Sender: FDA-Public Use
  Company Number: US-VERTEX PHARMACEUTICALS INC.-AE-2012-006846

PATIENT
  Sex: Male
  Weight: 81.72 kg

DRUGS (4)
  1. INCIVEK [Suspect]
     Indication: HEPATITIS C
     Route: 048
     Dates: start: 20111013, end: 20120105
  2. PEGASYS [Concomitant]
     Indication: HEPATITIS C
     Dates: start: 20111013, end: 20120405
  3. COPEGUS [Concomitant]
     Dates: start: 20120101, end: 20120405
  4. COPEGUS [Concomitant]
     Indication: HEPATITIS C
     Dates: start: 20111013, end: 20120101

REACTIONS (5)
  - PLATELET COUNT DECREASED [None]
  - BLISTER [None]
  - ANAEMIA [None]
  - SCAB [None]
  - RASH PRURITIC [None]
